FAERS Safety Report 5375703-5 (Version None)
Quarter: 2007Q2

REPORT INFORMATION
  Report Type: 
  Country: None (occurrence: None)
  Receive Date: 20070627
  Receipt Date: 20070614
  Transmission Date: 20071010
  Serious: Yes (Hospitalization)
  Sender: FDA-Public Use
  Company Number: T07-USA-02615-02

PATIENT
  Sex: Male
  Weight: 2.473 kg

DRUGS (3)
  1. CERVIDIL (UNBLINDED) (DINOPROSTONE) [Suspect]
     Indication: LABOUR INDUCTION
     Dosage: 10 MG ONCE TRANSPLACENTAL
     Route: 064
     Dates: start: 20061227, end: 20061227
  2. ZOLPIDEM TARTRATE [Concomitant]
  3. TYLENOL (CAPLET) [Concomitant]

REACTIONS (7)
  - APGAR SCORE LOW [None]
  - BLOOD PH DECREASED [None]
  - CAESAREAN SECTION [None]
  - DRUG EXPOSURE DURING PREGNANCY [None]
  - FOETAL HEART RATE DECELERATION [None]
  - FOETAL HEART RATE DISORDER [None]
  - TACHYCARDIA FOETAL [None]
